FAERS Safety Report 18440279 (Version 2)
Quarter: 2020Q4

REPORT INFORMATION
  Report Type: Spontaneous
  Country: SK (occurrence: SK)
  Receive Date: 20201029
  Receipt Date: 20201207
  Transmission Date: 20210114
  Serious: Yes (Hospitalization)
  Sender: FDA-Public Use
  Company Number: SK-ABBVIE-20K-260-3626827-00

PATIENT
  Sex: Male

DRUGS (2)
  1. HUMIRA [Suspect]
     Active Substance: ADALIMUMAB
     Indication: ANKYLOSING SPONDYLITIS
     Route: 058
     Dates: start: 20141022, end: 202008
  2. FLECTOR [Concomitant]
     Active Substance: DICLOFENAC EPOLAMINE
     Indication: ANKYLOSING SPONDYLITIS
     Dosage: MAXIMUM 3 PER DAY
     Route: 048
     Dates: start: 2014

REACTIONS (7)
  - Spondylolisthesis [Unknown]
  - Hypertension [Unknown]
  - Ewing^s sarcoma [Unknown]
  - Obesity [Unknown]
  - Liver disorder [Unknown]
  - Iridocyclitis [Unknown]
  - Hypoaesthesia [Unknown]

NARRATIVE: CASE EVENT DATE: 2014
